FAERS Safety Report 8267527 (Version 3)
Quarter: 2013Q2

REPORT INFORMATION
  Report Type: Spontaneous
  Country: FR (occurrence: FR)
  Receive Date: 20111129
  Receipt Date: 20130401
  Transmission Date: 20140414
  Serious: Yes (Hospitalization)
  Sender: FDA-Public Use
  Company Number: FR-BRISTOL-MYERS SQUIBB COMPANY-16246134

PATIENT
  Age: 30 Year
  Sex: Female

DRUGS (8)
  1. AZACTAM [Suspect]
     Indication: MENINGITIS
     Dosage: 17-23SEP2010; RESTART ON 19-OCT-2010.
     Route: 042
     Dates: start: 20100917
  2. CLAFORAN [Suspect]
     Indication: MENINGITIS
     Route: 042
     Dates: start: 20100901, end: 20100903
  3. FOSFOCINE [Suspect]
     Indication: MENINGITIS
     Dosage: 01-03SEP10.3 D.25SEP-27SEP10?DRUG REINTRODUCED AGAIN.
     Route: 048
     Dates: start: 20100901, end: 20100927
  4. VANCOMYCIN [Suspect]
     Indication: MENINGITIS
     Route: 042
     Dates: start: 20100903, end: 20100927
  5. GENTAMICIN [Suspect]
     Indication: MENINGITIS
     Dosage: 03-07SEP10.5D.23-25SEP10?DRUG REINTRODUCED AGAIN.
     Route: 042
     Dates: start: 20100903, end: 20100925
  6. CIFLOX [Suspect]
     Indication: MENINGITIS
     Route: 065
     Dates: start: 20100923, end: 20100925
  7. BACTRIM [Suspect]
     Indication: MENINGITIS
     Route: 065
     Dates: start: 20100917, end: 20100923
  8. VISIPAQUE [Suspect]
     Dosage: 1 DF: 1 UNIT INJ ONCE.
     Route: 042
     Dates: start: 20100921, end: 20100921

REACTIONS (1)
  - Drug reaction with eosinophilia and systemic symptoms [Recovered/Resolved]
